FAERS Safety Report 6745168-7 (Version None)
Quarter: 2010Q2

REPORT INFORMATION
  Report Type: 
  Country: None (occurrence: None)
  Receive Date: 20100526
  Receipt Date: 20100514
  Transmission Date: 20101027
  Serious: Yes (Hospitalization)
  Sender: FDA-Public Use
  Company Number: 7004055

PATIENT
  Age: 43 Year
  Sex: Female

DRUGS (1)
  1. REBIF [Suspect]
     Indication: MULTIPLE SCLEROSIS
     Dates: start: 20080715, end: 20100512

REACTIONS (3)
  - HOMICIDAL IDEATION [None]
  - HYPERTENSION [None]
  - VIOLENCE-RELATED SYMPTOM [None]
